FAERS Safety Report 21170201 (Version 1)
Quarter: 2022Q3

REPORT INFORMATION
  Report Type: Spontaneous
  Country: FR (occurrence: None)
  Receive Date: 20220804
  Receipt Date: 20220804
  Transmission Date: 20221027
  Serious: Yes (Life-Threatening, Hospitalization, Other)
  Sender: FDA-Public Use
  Company Number: FR-Orion Corporation ORION PHARMA-TREX2022-0078

PATIENT
  Age: 57 Year
  Sex: Male

DRUGS (5)
  1. METHOTREXATE SODIUM [Suspect]
     Active Substance: METHOTREXATE SODIUM
     Indication: Psoriatic arthropathy
     Dosage: STRENGTH: 10 MG
     Route: 048
     Dates: start: 202102, end: 20220320
  2. IXPRIM [Concomitant]
     Active Substance: ACETAMINOPHEN\TRAMADOL HYDROCHLORIDE
     Indication: Pain
     Dosage: STRENGTH: 37.5 MG/325 MG
     Route: 048
     Dates: start: 20220202, end: 20220222
  3. BIKTARVY [Concomitant]
     Active Substance: BICTEGRAVIR SODIUM\EMTRICITABINE\TENOFOVIR ALAFENAMIDE FUMARATE
     Indication: HIV infection
     Dosage: STRENGTH:50 MG/200 MG/25 MG
     Route: 065
  4. METHYLPREDNISOLONE [Concomitant]
     Active Substance: METHYLPREDNISOLONE
     Indication: Dental care
     Dosage: FREQUENCY: 3, AND THEN 2 BY DAY
     Route: 048
     Dates: start: 20220209, end: 20220214
  5. AUGMENTIN [Concomitant]
     Active Substance: AMOXICILLIN\CLAVULANATE POTASSIUM
     Indication: Dental care
     Dosage: STRENGTH: 500 MG/62.5 MG?FREQUENCY: EVERY 1 DAY, 2 TABLETS 3 TIMES A DAY
     Route: 048
     Dates: start: 20220209, end: 20220217

REACTIONS (3)
  - Pancytopenia [Recovered/Resolved]
  - Febrile bone marrow aplasia [Recovered/Resolved]
  - Hepatomegaly [Unknown]

NARRATIVE: CASE EVENT DATE: 20220322
